APPROVED DRUG PRODUCT: PLETAL
Active Ingredient: CILOSTAZOL
Strength: 50MG **Federal Register determination that product was not discontinued or withdrawn for safety or effectiveness reasons**
Dosage Form/Route: TABLET;ORAL
Application: N020863 | Product #001
Applicant: OTSUKA PHARMACEUTICAL CO LTD
Approved: Jan 15, 1999 | RLD: Yes | RS: No | Type: DISCN